FAERS Safety Report 15311005 (Version 1)
Quarter: 2018Q3

REPORT INFORMATION
  Report Type: Spontaneous
  Country: US (occurrence: US)
  Receive Date: 20180814
  Receipt Date: 20180814
  Transmission Date: 20181010
  Serious: Yes (Other)
  Sender: FDA-Public Use
  Company Number: None

PATIENT
  Age: 78 Year
  Sex: Female
  Weight: 86.85 kg

DRUGS (6)
  1. DULOXETINE HCL DR 30 MG CAPSULE [Suspect]
     Active Substance: DULOXETINE HYDROCHLORIDE
     Indication: DEPRESSION
     Dosage: ?          QUANTITY:60 CAPSULE(S); 2A DAY?
     Route: 048
     Dates: start: 20180601, end: 20180720
  2. DULOXETINE HCL DR 30 MG CAPSULE [Suspect]
     Active Substance: DULOXETINE HYDROCHLORIDE
     Indication: PAIN
     Dosage: ?          QUANTITY:60 CAPSULE(S); 2A DAY?
     Route: 048
     Dates: start: 20180601, end: 20180720
  3. TYLENOL [Concomitant]
     Active Substance: ACETAMINOPHEN
  4. GABAPENTON [Concomitant]
  5. VITAMINS [Concomitant]
     Active Substance: VITAMINS
  6. 2KINDS OF INSULIN [Concomitant]

REACTIONS (1)
  - Peripheral coldness [None]

NARRATIVE: CASE EVENT DATE: 20180701
